FAERS Safety Report 11410534 (Version 1)
Quarter: 2015Q3

REPORT INFORMATION
  Report Type: Spontaneous
  Country: US (occurrence: US)
  Receive Date: 20150824
  Receipt Date: 20150824
  Transmission Date: 20151125
  Serious: No
  Sender: FDA-Public Use
  Company Number: US-PFIZER INC-2015268909

PATIENT
  Age: 75 Year
  Sex: Male
  Weight: 66 kg

DRUGS (1)
  1. SUTENT [Suspect]
     Active Substance: SUNITINIB MALATE
     Indication: METASTATIC RENAL CELL CARCINOMA
     Dosage: 37.5 MG, 1X/DAY
     Dates: start: 20140618, end: 201507

REACTIONS (2)
  - Disease progression [Unknown]
  - Metastatic renal cell carcinoma [Unknown]
